FAERS Safety Report 24948275 (Version 2)
Quarter: 2025Q1

REPORT INFORMATION
  Report Type: Spontaneous
  Country: IT (occurrence: IT)
  Receive Date: 20250210
  Receipt Date: 20250310
  Transmission Date: 20250408
  Serious: Yes (Life-Threatening, Hospitalization)
  Sender: TEVA
  Company Number: IT-TEVA-VS-3295546

PATIENT
  Sex: Male

DRUGS (4)
  1. BOSENTAN [Suspect]
     Active Substance: BOSENTAN
     Indication: Pulmonary hypertension
     Route: 065
  2. MILRINONE [Suspect]
     Active Substance: MILRINONE
     Indication: Respiratory distress
     Route: 065
  3. NITRIC OXIDE [Suspect]
     Active Substance: NITRIC OXIDE
     Indication: Respiratory distress
     Route: 055
  4. SILDENAFIL [Suspect]
     Active Substance: SILDENAFIL
     Indication: Respiratory distress
     Route: 065

REACTIONS (1)
  - Drug ineffective [Unknown]
